FAERS Safety Report 5503620-6 (Version None)
Quarter: 2007Q4

REPORT INFORMATION
  Report Type: 
  Country: None (occurrence: None)
  Receive Date: 20071030
  Receipt Date: 20071017
  Transmission Date: 20080405
  Serious: Yes (Death)
  Sender: FDA-Public Use
  Company Number: ENT 2007-0126

PATIENT
  Age: 62 Year
  Sex: Female

DRUGS (9)
  1. COMTAN [Suspect]
     Indication: DRUG EFFECT DECREASED
     Dosage: 300 MG ORAL
     Route: 048
     Dates: start: 20070706, end: 20070710
  2. DOPACOL [Suspect]
     Dosage: 4.5 DF/D ORAL, 5 DF/D ORAL, 5.5 DF/D ORAL, 6.5 DF/D ORAL, 8 DF/D ORAL, 7 DF/D ORAL, 6 DF/D ORAL
     Route: 048
     Dates: start: 20020405, end: 20021107
  3. DOPACOL [Suspect]
     Dosage: 4.5 DF/D ORAL, 5 DF/D ORAL, 5.5 DF/D ORAL, 6.5 DF/D ORAL, 8 DF/D ORAL, 7 DF/D ORAL, 6 DF/D ORAL
     Route: 048
     Dates: start: 20021108, end: 20040114
  4. DOPACOL [Suspect]
     Dosage: 4.5 DF/D ORAL, 5 DF/D ORAL, 5.5 DF/D ORAL, 6.5 DF/D ORAL, 8 DF/D ORAL, 7 DF/D ORAL, 6 DF/D ORAL
     Route: 048
     Dates: start: 20040115, end: 20041021
  5. DOPACOL [Suspect]
     Dosage: 4.5 DF/D ORAL, 5 DF/D ORAL, 5.5 DF/D ORAL, 6.5 DF/D ORAL, 8 DF/D ORAL, 7 DF/D ORAL, 6 DF/D ORAL
     Route: 048
     Dates: start: 20041022, end: 20060105
  6. DOPACOL [Suspect]
     Dosage: 4.5 DF/D ORAL, 5 DF/D ORAL, 5.5 DF/D ORAL, 6.5 DF/D ORAL, 8 DF/D ORAL, 7 DF/D ORAL, 6 DF/D ORAL
     Route: 048
     Dates: start: 20060106, end: 20070419
  7. DOPACOL [Suspect]
     Dosage: 4.5 DF/D ORAL, 5 DF/D ORAL, 5.5 DF/D ORAL, 6.5 DF/D ORAL, 8 DF/D ORAL, 7 DF/D ORAL, 6 DF/D ORAL
     Route: 048
     Dates: start: 20070420, end: 20070705
  8. DOPACOL [Suspect]
     Dosage: 4.5 DF/D ORAL, 5 DF/D ORAL, 5.5 DF/D ORAL, 6.5 DF/D ORAL, 8 DF/D ORAL, 7 DF/D ORAL, 6 DF/D ORAL
     Route: 048
     Dates: start: 20070706
  9. FERROMIA [Concomitant]

REACTIONS (1)
  - CEREBRAL HAEMORRHAGE [None]
